FAERS Safety Report 22591753 (Version 2)
Quarter: 2023Q2

REPORT INFORMATION
  Report Type: Spontaneous
  Country: ES (occurrence: ES)
  Receive Date: 20230612
  Receipt Date: 20230623
  Transmission Date: 20230722
  Serious: Yes (Disabling, Other)
  Sender: FDA-Public Use
  Company Number: ES-SA-SAC20230612000425

PATIENT
  Age: 43 Year
  Sex: Female

DRUGS (5)
  1. ISATUXIMAB [Suspect]
     Active Substance: ISATUXIMAB
     Indication: Plasma cell myeloma
     Dosage: 10 MG/KG D1, 8, 15 AND 22
     Route: 042
  2. DEXAMETHASONE [Suspect]
     Active Substance: DEXAMETHASONE
     Indication: Plasma cell myeloma
     Dosage: 20 MG D1-2, 8-9, 15-16 AND 22-23
     Route: 065
  3. CARFILZOMIB [Suspect]
     Active Substance: CARFILZOMIB
     Indication: Plasma cell myeloma
     Dosage: 20 MG/M2 D1-2
  4. CARFILZOMIB [Suspect]
     Active Substance: CARFILZOMIB
     Dosage: 56 MG/M2 D8-9 AND D15-16
  5. ENALAPRIL [Concomitant]
     Active Substance: ENALAPRIL
     Dosage: UNK
     Route: 065

REACTIONS (11)
  - Thrombocytopenia [Unknown]
  - Neutropenia [Unknown]
  - Back pain [Unknown]
  - Gingival bleeding [Unknown]
  - Dysphonia [Unknown]
  - Pruritus [Unknown]
  - COVID-19 [Unknown]
  - Urticaria [Unknown]
  - Dyspnoea [Unknown]
  - Anaemia [Unknown]
  - Infusion related reaction [Unknown]
